FAERS Safety Report 9057378 (Version 2)
Quarter: 2013Q1

REPORT INFORMATION
  Report Type: Spontaneous
  Country: JP (occurrence: JP)
  Receive Date: 20130204
  Receipt Date: 20130312
  Transmission Date: 20140127
  Serious: Yes (Other)
  Sender: FDA-Public Use
  Company Number: PHHY2013JP008913

PATIENT
  Age: 68 Year
  Sex: Female

DRUGS (5)
  1. MINOCYCLINE [Suspect]
     Indication: GRANULOMA ANNULARE
     Dosage: 200 MG, UNK
  2. MINOCYCLINE [Suspect]
     Dosage: 100 MG, UNK
  3. OFLOXACIN [Suspect]
     Indication: GRANULOMA ANNULARE
     Dosage: 400 MG, UNK
  4. RIFAMPICIN [Suspect]
     Indication: GRANULOMA ANNULARE
     Dosage: 600 MG, UNK
  5. LEVOTHYROXINE SODIUM [Concomitant]
     Indication: HYPOTHYROIDISM

REACTIONS (1)
  - Thrombocytopenia [Recovered/Resolved]
